FAERS Safety Report 13241812 (Version 1)
Quarter: 2017Q1

REPORT INFORMATION
  Report Type: Spontaneous
  Country: US (occurrence: US)
  Receive Date: 20170216
  Receipt Date: 20170216
  Transmission Date: 20170428
  Serious: No
  Sender: FDA-Public Use
  Company Number: US-RELYPSA-RLY2016004642

PATIENT
  Age: 63 Year
  Sex: Female

DRUGS (7)
  1. MYCOPHENOLATE [Concomitant]
     Active Substance: MYCOPHENOLIC ACID
  2. RANITIDINE. [Concomitant]
     Active Substance: RANITIDINE
  3. VELTASSA [Suspect]
     Active Substance: PATIROMER
     Indication: HYPERKALAEMIA
     Dosage: 8.4 G, QD
     Route: 048
     Dates: start: 20161208, end: 20161223
  4. SIMVASTATIN. [Concomitant]
     Active Substance: SIMVASTATIN
  5. LISINOPRIL. [Concomitant]
     Active Substance: LISINOPRIL
  6. CARAFATE [Concomitant]
     Active Substance: SUCRALFATE
  7. AMLODIPINE [Concomitant]
     Active Substance: AMLODIPINE BESYLATE

REACTIONS (3)
  - Abdominal pain upper [Unknown]
  - Flatulence [Unknown]
  - Vomiting [Unknown]

NARRATIVE: CASE EVENT DATE: 201612
